FAERS Safety Report 8424463-X (Version None)
Quarter: 2012Q2

REPORT INFORMATION
  Report Type: 
  Country: None (occurrence: None)
  Receive Date: 20120610
  Receipt Date: 20120528
  Transmission Date: 20120825
  Serious: Yes (Hospitalization, Other)
  Sender: FDA-Public Use
  Company Number: BR-BRISTOL-MYERS SQUIBB COMPANY-16674087

PATIENT
  Age: 41 Year
  Sex: Female

DRUGS (4)
  1. TENOFOVIR DISOPROXIL FUMARATE [Suspect]
     Indication: HIV INFECTION
     Dosage: STARTED THE ANTIRETROVIRLAL SCHEME IN 2005.
     Dates: start: 20050701
  2. LAMIVUDINE [Suspect]
     Indication: HIV INFECTION
     Dosage: STARTED THE ANTIRETROVIRLAL SCHEME IN 2005.
     Dates: start: 20050701
  3. RITONAVIR [Suspect]
     Indication: HIV INFECTION
     Dosage: STARTED THE ANTIRETROVIRLAL SCHEME IN 2005.
     Dates: start: 20050701
  4. REYATAZ [Suspect]
     Indication: HIV INFECTION
     Dosage: STARTED THE ANTIRETROVIRLAL SCHEME IN 2005.
     Dates: start: 20050701

REACTIONS (16)
  - AMNESIA [None]
  - CONFUSIONAL STATE [None]
  - AFFECT LABILITY [None]
  - BASAL CELL CARCINOMA [None]
  - ABDOMINAL PAIN [None]
  - PYREXIA [None]
  - LIPODYSTROPHY ACQUIRED [None]
  - ESSENTIAL TREMOR [None]
  - DIARRHOEA [None]
  - LEUKOENCEPHALOPATHY [None]
  - HEADACHE [None]
  - JAUNDICE [None]
  - DIZZINESS [None]
  - MALIGNANT MELANOMA [None]
  - FEELING ABNORMAL [None]
  - AMOEBIASIS [None]
